FAERS Safety Report 8418342-1 (Version None)
Quarter: 2012Q2

REPORT INFORMATION
  Report Type: 
  Country: None (occurrence: None)
  Receive Date: 20120323
  Receipt Date: 20110211
  Transmission Date: 20120825
  Serious: Yes (Hospitalization)
  Sender: FDA-Public Use
  Company Number: 163-21880-11020621

PATIENT
  Age: 65 Year
  Sex: Male
  Weight: 73.6 kg

DRUGS (7)
  1. MULTIVITAMIN [Concomitant]
  2. REVLIMID [Suspect]
     Indication: MULTIPLE MYELOMA
     Dosage: 5 MG, 1 IN 1 D, PO ; 10 MG, 1 IN 1 D, PO ; 25 MG, DAILY X 21 DAYS, PO
     Route: 048
     Dates: start: 20090901
  3. REVLIMID [Suspect]
     Indication: MULTIPLE MYELOMA
     Dosage: 5 MG, 1 IN 1 D, PO ; 10 MG, 1 IN 1 D, PO ; 25 MG, DAILY X 21 DAYS, PO
     Route: 048
     Dates: start: 20100901
  4. REVLIMID [Suspect]
     Indication: MULTIPLE MYELOMA
     Dosage: 5 MG, 1 IN 1 D, PO ; 10 MG, 1 IN 1 D, PO ; 25 MG, DAILY X 21 DAYS, PO
     Route: 048
     Dates: start: 20101201, end: 20110101
  5. CIALIS [Concomitant]
  6. ASA (ACETYSALICYCLIC ACID) [Concomitant]
  7. ACYCLOVIR [Concomitant]

REACTIONS (6)
  - CONSTIPATION [None]
  - THROMBOSIS [None]
  - HEADACHE [None]
  - CHEST PAIN [None]
  - HYPOAESTHESIA [None]
  - PARAESTHESIA [None]
